FAERS Safety Report 22099561 (Version 2)
Quarter: 2023Q2

REPORT INFORMATION
  Report Type: Report from Study
  Country: CA (occurrence: CA)
  Receive Date: 20230315
  Receipt Date: 20230403
  Transmission Date: 20230722
  Serious: Yes (Death, Hospitalization, Other)
  Sender: FDA-Public Use
  Company Number: CA-Taiho Oncology Inc-EU-2022-00314

PATIENT
  Age: 71 Year
  Sex: Female
  Weight: 43.6 kg

DRUGS (1)
  1. LONSURF [Suspect]
     Active Substance: TIPIRACIL HYDROCHLORIDE\TRIFLURIDINE
     Indication: Colorectal cancer metastatic
     Dosage: CURRENT CYCLE UNKNOWN.
     Route: 048
     Dates: start: 20220126

REACTIONS (17)
  - Disease progression [Fatal]
  - Cholangitis [Unknown]
  - COVID-19 [Unknown]
  - Hydronephrosis [Unknown]
  - Acute kidney injury [Unknown]
  - Insomnia [Unknown]
  - Rash erythematous [Unknown]
  - Rash pruritic [Unknown]
  - Urinary tract infection [Unknown]
  - Decreased appetite [Unknown]
  - Nausea [Unknown]
  - Fatigue [Unknown]
  - Abdominal pain [Unknown]
  - Product distribution issue [Unknown]
  - Therapy interrupted [Unknown]
  - Asthenia [Unknown]
  - Weight decreased [Unknown]
